FAERS Safety Report 7335305-8 (Version None)
Quarter: 2011Q1

REPORT INFORMATION
  Report Type: 
  Country: None (occurrence: None)
  Receive Date: 20110307
  Receipt Date: 20110301
  Transmission Date: 20110831
  Serious: Yes (Hospitalization, Other)
  Sender: FDA-Public Use
  Company Number: IT-ASTRAZENECA-2011SE10319

PATIENT
  Age: 47 Year
  Sex: Male

DRUGS (2)
  1. MERREM [Suspect]
     Indication: PERITONITIS BACTERIAL
     Route: 042
     Dates: start: 20110128, end: 20110216
  2. MERREM [Suspect]
     Indication: SEPSIS
     Route: 042
     Dates: start: 20110128, end: 20110216

REACTIONS (2)
  - JAUNDICE [None]
  - CHOLESTASIS [None]
